FAERS Safety Report 17066546 (Version 4)
Quarter: 2020Q2

REPORT INFORMATION
  Report Type: Spontaneous
  Country: US (occurrence: US)
  Receive Date: 20191122
  Receipt Date: 20200416
  Transmission Date: 20200713
  Serious: Yes (Hospitalization, Other)
  Sender: FDA-Public Use
  Company Number: US-INCYTE CORPORATION-2019IN011605

PATIENT

DRUGS (3)
  1. JAKAFI [Suspect]
     Active Substance: RUXOLITINIB
     Dosage: 10 MILLIGRAM, BID (SUN, MON, WED, FRI) ALTERNATING WITH 5 MG (TUES, THURS, SATURDAY)
     Route: 048
     Dates: start: 20190107
  2. JAKAFI [Suspect]
     Active Substance: RUXOLITINIB
     Indication: POLYCYTHAEMIA VERA
     Dosage: 10 MILLIGRAM, BID (SUN, MON, WED, FRI) ALTERNATING WITH 5 MG (TUES, THURS, SATURDAY)
     Route: 048
  3. JAKAFI [Suspect]
     Active Substance: RUXOLITINIB
     Dosage: 10 MILLIGRAM, BID (SUN, MON, WED, FRI) ALTERNATING WITH 5 MG (TUES, THURS, SATURDAY)
     Route: 048

REACTIONS (4)
  - Product dose omission [Unknown]
  - Blood disorder [Unknown]
  - Dysphagia [Unknown]
  - Pneumonia [Recovering/Resolving]
